FAERS Safety Report 8951153 (Version 1)
Quarter: 2012Q4

REPORT INFORMATION
  Report Type: 
  Country: US (occurrence: US)
  Receive Date: 20121207
  Receipt Date: 20121207
  Transmission Date: 20130627
  Serious: Yes (Other)
  Sender: FDA-Public Use
  Company Number: PHEH2012US023587

PATIENT
  Sex: Male

DRUGS (7)
  1. EXFORGE [Suspect]
  2. IBUPROFEN [Concomitant]
  3. FLOMAX [Concomitant]
  4. HYDROCODONE [Concomitant]
  5. METOPROLOL TART [Concomitant]
  6. SIMVASTATIN [Concomitant]
  7. TRIAM HCTZ [Concomitant]

REACTIONS (1)
  - Diabetes mellitus [Unknown]
